FAERS Safety Report 8932562 (Version 1)
Quarter: 2012Q4

REPORT INFORMATION
  Report Type: Spontaneous
  Country: JP (occurrence: None)
  Receive Date: 20121119
  Receipt Date: 20121119
  Transmission Date: 20130627
  Serious: Yes (Hospitalization)
  Sender: FDA-Public Use
  Company Number: TCI2012A05815

PATIENT
  Age: 85 Year
  Sex: Male

DRUGS (4)
  1. TAKEPRON [Suspect]
     Route: 048
     Dates: start: 20110912, end: 20120514
  2. CALSLOGT (MANIDIPINE HYDROCHLORIDE) [Concomitant]
  3. MOBIC (MELOXICAM) [Concomitant]
  4. ZYLORIC (ALLOPURINOL) [Suspect]

REACTIONS (1)
  - Gastrointestinal perforation [None]
